FAERS Safety Report 24295257 (Version 1)
Quarter: 2024Q3

REPORT INFORMATION
  Report Type: Spontaneous
  Country: FR (occurrence: FR)
  Receive Date: 20240907
  Receipt Date: 20240907
  Transmission Date: 20241016
  Serious: Yes (Other)
  Sender: VERITY PHARMACEUTICALS
  Company Number: FR-VER-202400014

PATIENT
  Age: 44 Year
  Sex: Female
  Weight: 97 kg

DRUGS (8)
  1. TRIPTORELIN PAMOATE [Suspect]
     Active Substance: TRIPTORELIN PAMOATE
     Indication: In vitro fertilisation
     Dosage: POWDER AND SOLVENT FOR SUSPENSION FOR INJECTION
     Route: 048
     Dates: start: 202309, end: 202309
  2. ORGALUTRAN [Concomitant]
     Active Substance: GANIRELIX ACETATE
     Indication: In vitro fertilisation
     Route: 065
     Dates: start: 202309, end: 202309
  3. CHORIOGONADOTROPIN ALFA [Concomitant]
     Active Substance: CHORIOGONADOTROPIN ALFA
     Indication: In vitro fertilisation
     Route: 065
     Dates: start: 202309, end: 202309
  4. Loxen [Concomitant]
     Indication: Hypertension
     Route: 048
     Dates: start: 202406
  5. TRANDATE [Concomitant]
     Active Substance: LABETALOL HYDROCHLORIDE
     Indication: Hypertension
     Route: 065
     Dates: start: 202406
  6. ALDOMET [Concomitant]
     Active Substance: METHYLDOPA
     Indication: Hypertension
     Route: 048
     Dates: start: 202405
  7. MENOPUR [Concomitant]
     Active Substance: FOLLITROPIN\LUTEINIZING HORMONE
     Indication: In vitro fertilisation
     Route: 065
     Dates: start: 202309, end: 202309
  8. LIRAGLUTIDE [Suspect]
     Active Substance: LIRAGLUTIDE
     Indication: Weight control
     Route: 058
     Dates: start: 202304, end: 202309

REACTIONS (4)
  - Bone pain [Not Recovered/Not Resolved]
  - Bone fissure [Not Recovered/Not Resolved]
  - Off label use [Unknown]
  - Osteopenia [Not Recovered/Not Resolved]

NARRATIVE: CASE EVENT DATE: 20230901
